FAERS Safety Report 8399689-4 (Version None)
Quarter: 2012Q1

REPORT INFORMATION
  Report Type: 
  Country: None (occurrence: None)
  Receive Date: 20120323
  Receipt Date: 20110721
  Transmission Date: 20120608
  Serious: Yes (Hospitalization)
  Sender: FDA-Public Use
  Company Number: 163-21880-11072364

PATIENT
  Age: 80 Year
  Sex: Male
  Weight: 80.2867 kg

DRUGS (4)
  1. PROCRIT [Concomitant]
  2. REVLIMID [Suspect]
     Indication: MYELODYSPLASTIC SYNDROME
     Dosage: 15 MG, D1-21, PO
     Route: 048
     Dates: start: 20110716, end: 20110718
  3. ARICEPT [Concomitant]
  4. NAMENDA [Concomitant]

REACTIONS (3)
  - NEUTROPENIA [None]
  - THROMBOCYTOPENIA [None]
  - ANAEMIA [None]
